FAERS Safety Report 13413132 (Version 2)
Quarter: 2017Q4

REPORT INFORMATION
  Report Type: Spontaneous
  Country: US (occurrence: US)
  Receive Date: 20170406
  Receipt Date: 20171123
  Transmission Date: 20180320
  Serious: No
  Sender: FDA-Public Use
  Company Number: US-JNJFOC-20170310936

PATIENT
  Age: 11 Year
  Sex: Male

DRUGS (16)
  1. RISPERDAL [Suspect]
     Active Substance: RISPERIDONE
     Indication: AFFECTIVE DISORDER
     Dosage: VARYING DOSE OF 0.5 MG, 1.0 MG TO 2.0 MG
     Route: 048
     Dates: start: 20070625, end: 20090605
  2. RISPERDAL [Suspect]
     Active Substance: RISPERIDONE
     Indication: ATTENTION DEFICIT/HYPERACTIVITY DISORDER
     Dosage: VARYING DOSE OF 0.5 MG, 1.0 MG TO 2.0 MG
     Route: 048
     Dates: start: 20070625, end: 20090605
  3. RISPERIDONE. [Suspect]
     Active Substance: RISPERIDONE
     Indication: POST-TRAUMATIC STRESS DISORDER
     Dosage: VARYING DOSE OF 0.5 MG, 1.0 MG TO 2.0 MG
     Route: 048
     Dates: start: 20090702, end: 20131020
  4. RISPERIDONE. [Suspect]
     Active Substance: RISPERIDONE
     Indication: ATTENTION DEFICIT/HYPERACTIVITY DISORDER
     Route: 048
     Dates: start: 20070527, end: 20140204
  5. RISPERIDONE. [Suspect]
     Active Substance: RISPERIDONE
     Indication: POST-TRAUMATIC STRESS DISORDER
     Route: 048
     Dates: start: 20070527, end: 20140204
  6. RISPERIDONE. [Suspect]
     Active Substance: RISPERIDONE
     Indication: SEXUAL DYSFUNCTION
     Route: 048
     Dates: start: 20070527, end: 20140204
  7. RISPERIDONE. [Suspect]
     Active Substance: RISPERIDONE
     Indication: AFFECTIVE DISORDER
     Route: 048
     Dates: start: 20070527, end: 20140204
  8. RISPERDAL [Suspect]
     Active Substance: RISPERIDONE
     Indication: ATTENTION DEFICIT/HYPERACTIVITY DISORDER
     Route: 048
     Dates: start: 20070527, end: 20140204
  9. RISPERDAL [Suspect]
     Active Substance: RISPERIDONE
     Indication: POST-TRAUMATIC STRESS DISORDER
     Dosage: VARYING DOSE OF 0.5 MG, 1.0 MG TO 2.0 MG
     Route: 048
     Dates: start: 20070625, end: 20090605
  10. RISPERIDONE. [Suspect]
     Active Substance: RISPERIDONE
     Indication: ATTENTION DEFICIT/HYPERACTIVITY DISORDER
     Dosage: VARYING DOSE OF 0.5 MG, 1.0 MG TO 2.0 MG
     Route: 048
     Dates: start: 20090702, end: 20131020
  11. RISPERDAL [Suspect]
     Active Substance: RISPERIDONE
     Indication: SEXUAL DYSFUNCTION
     Route: 048
     Dates: start: 20070527, end: 20140204
  12. RISPERDAL [Suspect]
     Active Substance: RISPERIDONE
     Indication: AFFECTIVE DISORDER
     Route: 048
     Dates: start: 20070527, end: 20140204
  13. RISPERIDONE. [Suspect]
     Active Substance: RISPERIDONE
     Indication: AFFECTIVE DISORDER
     Dosage: VARYING DOSE OF 0.5 MG, 1.0 MG TO 2.0 MG
     Route: 048
     Dates: start: 20090702, end: 20131020
  14. RISPERDAL [Suspect]
     Active Substance: RISPERIDONE
     Indication: POST-TRAUMATIC STRESS DISORDER
     Route: 048
     Dates: start: 20070527, end: 20140204
  15. RISPERDAL [Suspect]
     Active Substance: RISPERIDONE
     Indication: SEXUAL DYSFUNCTION
     Dosage: VARYING DOSE OF 0.5 MG, 1.0 MG TO 2.0 MG
     Route: 048
     Dates: start: 20070625, end: 20090605
  16. RISPERIDONE. [Suspect]
     Active Substance: RISPERIDONE
     Indication: SEXUAL DYSFUNCTION
     Dosage: VARYING DOSE OF 0.5 MG, 1.0 MG TO 2.0 MG
     Route: 048
     Dates: start: 20090702, end: 20131020

REACTIONS (4)
  - Product use in unapproved indication [Unknown]
  - Gynaecomastia [Unknown]
  - Emotional disorder [Unknown]
  - Off label use [Unknown]

NARRATIVE: CASE EVENT DATE: 20070625
